FAERS Safety Report 8377024-5 (Version None)
Quarter: 2012Q2

REPORT INFORMATION
  Report Type: 
  Country: None (occurrence: None)
  Receive Date: 20120518
  Receipt Date: 20120507
  Transmission Date: 20120825
  Serious: Yes (Other)
  Sender: FDA-Public Use
  Company Number: 2012P1023690

PATIENT
  Age: 70 Year
  Sex: Female

DRUGS (1)
  1. PHENYTOIN [Suspect]
     Indication: CEREBRAL INFARCTION

REACTIONS (2)
  - HERPES ZOSTER [None]
  - DRUG RASH WITH EOSINOPHILIA AND SYSTEMIC SYMPTOMS [None]
